FAERS Safety Report 10200763 (Version 2)
Quarter: 2014Q2

REPORT INFORMATION
  Report Type: Spontaneous
  Country: IE (occurrence: IE)
  Receive Date: 20140528
  Receipt Date: 20140528
  Transmission Date: 20141212
  Serious: Yes (Hospitalization)
  Sender: FDA-Public Use
  Company Number: IE-AMGEN-IRLSP2014026608

PATIENT
  Age: 75 Year
  Sex: Male

DRUGS (9)
  1. NEULASTA [Suspect]
     Indication: LUNG NEOPLASM MALIGNANT
     Dosage: 6 MG, ONCE
     Route: 058
     Dates: start: 20140321, end: 20140321
  2. MAGNESIUM VERLA /00648601/ [Suspect]
     Indication: BLOOD MAGNESIUM DECREASED
     Dosage: UNK UNK, DAILY
     Route: 048
     Dates: start: 20140310
  3. CARBOPLATIN W/TAXOL [Concomitant]
     Indication: LUNG NEOPLASM MALIGNANT
     Dosage: 3/52
     Route: 042
     Dates: start: 20140319
  4. NUPRIN [Concomitant]
     Dosage: UNK
  5. BISOPROLOL [Concomitant]
     Dosage: UNK
  6. MELFEN [Concomitant]
     Dosage: UNK
  7. PANTOPRAZOLE [Concomitant]
     Dosage: UNK
  8. GERMENTIN [Concomitant]
     Dosage: UNK
  9. ALPRAZOLAM [Concomitant]
     Dosage: UNK

REACTIONS (9)
  - Diarrhoea [Recovered/Resolved]
  - Fatigue [Unknown]
  - Pyrexia [Unknown]
  - Red blood cell count decreased [None]
  - Haemoglobin decreased [None]
  - Haematocrit decreased [None]
  - White blood cell count decreased [None]
  - Neutrophil count decreased [None]
  - Platelet count decreased [None]
